FAERS Safety Report 5683851-5 (Version None)
Quarter: 2008Q1

REPORT INFORMATION
  Report Type: 
  Country: None (occurrence: None)
  Receive Date: 20080328
  Receipt Date: 20080318
  Transmission Date: 20080703
  Serious: Yes (Hospitalization)
  Sender: FDA-Public Use
  Company Number: JP-JNJFOC-20071204076

PATIENT
  Sex: Male
  Weight: 75 kg

DRUGS (5)
  1. ITRIZOLE [Suspect]
     Indication: ONYCHOMYCOSIS
     Route: 048
  2. CALSLOT [Suspect]
     Indication: HYPERTENSION
     Route: 048
  3. DIGOXIN [Concomitant]
     Indication: ATRIAL FIBRILLATION
     Route: 048
  4. ASPIRIN [Concomitant]
     Indication: CEREBRAL INFARCTION
     Route: 048
  5. PERSANTINE [Concomitant]
     Route: 048

REACTIONS (1)
  - CARDIAC FAILURE CONGESTIVE [None]
